FAERS Safety Report 6035542-9 (Version None)
Quarter: 2009Q1

REPORT INFORMATION
  Report Type: 
  Country: None (occurrence: None)
  Receive Date: 20090113
  Receipt Date: 20090106
  Transmission Date: 20090719
  Serious: Yes (Other)
  Sender: FDA-Public Use
  Company Number: US-JNJFOC-20090100926

PATIENT
  Age: 38 Year
  Sex: Female
  Weight: 68.04 kg

DRUGS (5)
  1. REMICADE [Suspect]
     Indication: CROHN'S DISEASE
     Route: 042
  2. MERCAPTOPURINE [Concomitant]
     Indication: CROHN'S DISEASE
  3. OPIUM [Concomitant]
     Indication: PAIN
  4. MORPHINE [Concomitant]
     Indication: PAIN
  5. VITAMIN B-12 [Concomitant]

REACTIONS (4)
  - ALOPECIA [None]
  - COLECTOMY [None]
  - INFUSION RELATED REACTION [None]
  - RENAL FAILURE CHRONIC [None]
